FAERS Safety Report 7678087-2 (Version None)
Quarter: 2011Q3

REPORT INFORMATION
  Report Type: 
  Country: None (occurrence: None)
  Receive Date: 20110811
  Receipt Date: 20110810
  Transmission Date: 20111222
  Serious: Yes (Other)
  Sender: FDA-Public Use
  Company Number: US-BRISTOL-MYERS SQUIBB COMPANY-15950942

PATIENT
  Age: 78 Year
  Sex: Male

DRUGS (1)
  1. COUMADIN [Suspect]
     Dosage: INITIALLY INTERRUPTED FOR 4 DAYS AND AGAIN INTERRUPTED FOR 3-4 DAYS
     Route: 048

REACTIONS (6)
  - HAEMORRHOIDS [None]
  - TRANSIENT ISCHAEMIC ATTACK [None]
  - POLYP [None]
  - RECTAL HAEMORRHAGE [None]
  - BACK DISORDER [None]
  - INTERNATIONAL NORMALISED RATIO DECREASED [None]
